FAERS Safety Report 8235662-4 (Version None)
Quarter: 2012Q1

REPORT INFORMATION
  Report Type: 
  Country: None (occurrence: None)
  Receive Date: 20120323
  Receipt Date: 20120309
  Transmission Date: 20120608
  Serious: Yes (Other)
  Sender: FDA-Public Use
  Company Number: TPA2012A00385

PATIENT
  Age: 51 Year
  Sex: Female
  Weight: 61.6892 kg

DRUGS (16)
  1. SYNTHROID [Concomitant]
  2. ESCITALOPRAM [Concomitant]
  3. RISPERDAL [Concomitant]
  4. RANITIDINE HYDROCHLORIDE [Concomitant]
  5. ACTOS [Suspect]
     Indication: TYPE 2 DIABETES MELLITUS
     Dosage: 15 MG, 1 IN 1 D, PER ORAL
     Route: 048
     Dates: start: 20111101
  6. OMEPRAZOLE [Concomitant]
  7. COMBIVENT (SALBUTAMOL, IPRATROPIUM BROMIDE)(AEROSOL FOR INHALATION) [Concomitant]
  8. LISINOPRIL [Concomitant]
  9. ADVAIR HFA [Concomitant]
  10. AMITRIPTYLINE HCL [Concomitant]
  11. TRICOR [Concomitant]
  12. INDOCIN [Concomitant]
  13. METFORMIN HCL [Concomitant]
  14. PRAVASTATIN [Concomitant]
  15. GABAPENTIN [Concomitant]
  16. LORCET-HD [Concomitant]

REACTIONS (2)
  - HEPATITIS C [None]
  - FLANK PAIN [None]
